FAERS Safety Report 26178798 (Version 1)
Quarter: 2025Q4

REPORT INFORMATION
  Report Type: Spontaneous
  Country: US (occurrence: GB)
  Receive Date: 20251219
  Receipt Date: 20251219
  Transmission Date: 20260118
  Serious: No
  Sender: AUROBINDO
  Company Number: US-AUROBINDO-AUR-APL-2025-043311

PATIENT
  Age: 49 Year
  Sex: Female
  Weight: 81.64 kg

DRUGS (3)
  1. IBUPROFEN [Suspect]
     Active Substance: IBUPROFEN
     Indication: Bursitis
     Dosage: UNK (TWICE EVERY OTHER DAY)
     Route: 061
  2. IBUPROFEN [Suspect]
     Active Substance: IBUPROFEN
     Indication: Back pain
  3. IBUPROFEN [Suspect]
     Active Substance: IBUPROFEN
     Indication: Headache

REACTIONS (3)
  - Product taste abnormal [Unknown]
  - Product administration error [Unknown]
  - Product odour abnormal [Unknown]
